FAERS Safety Report 10240221 (Version 2)
Quarter: 2014Q2

REPORT INFORMATION
  Report Type: Spontaneous
  Country: JP (occurrence: JP)
  Receive Date: 20140617
  Receipt Date: 20140617
  Transmission Date: 20141212
  Serious: Yes (Hospitalization)
  Sender: FDA-Public Use
  Company Number: PHHY2014JP047659

PATIENT
  Age: 77 Year
  Sex: Male

DRUGS (2)
  1. DIOVAN [Suspect]
     Indication: HYPERTENSION
     Dosage: UNK UKN, UNK
     Route: 048
     Dates: start: 200307, end: 201403
  2. DIOVAN [Suspect]
     Dosage: UNK UKN, UNK
     Route: 048
     Dates: start: 201404

REACTIONS (3)
  - Depressed level of consciousness [Unknown]
  - Anaemia [Recovering/Resolving]
  - Hyperkalaemia [Recovered/Resolved]
